FAERS Safety Report 19174411 (Version 2)
Quarter: 2021Q2

REPORT INFORMATION
  Report Type: Report from Study
  Country: BE (occurrence: BE)
  Receive Date: 20210423
  Receipt Date: 20210521
  Transmission Date: 20210717
  Serious: Yes (Death, Hospitalization, Other)
  Sender: FDA-Public Use
  Company Number: BE-AMGEN-BELCT2021059120

PATIENT
  Age: 50 Year
  Sex: Female

DRUGS (2)
  1. ERENUMAB [Suspect]
     Active Substance: ERENUMAB
     Indication: MIGRAINE
     Dosage: 140 MILLIGRAM, QWK
     Route: 058
     Dates: start: 20200130, end: 20210330
  2. DICLOFENAC [Concomitant]
     Active Substance: DICLOFENAC
     Indication: PRODUCT USED FOR UNKNOWN INDICATION
     Dosage: UNK
     Route: 065

REACTIONS (11)
  - Respiratory failure [Fatal]
  - Cough [Fatal]
  - Oropharyngeal pain [Fatal]
  - Multiple organ dysfunction syndrome [Unknown]
  - Pyrexia [Fatal]
  - Dyspnoea [Fatal]
  - Cardiovascular disorder [Fatal]
  - COVID-19 pneumonia [Fatal]
  - Acute respiratory distress syndrome [Unknown]
  - Hyperventilation [Fatal]
  - Procedural pneumothorax [Fatal]

NARRATIVE: CASE EVENT DATE: 20210325
